FAERS Safety Report 4890655-X (Version None)
Quarter: 2006Q1

REPORT INFORMATION
  Report Type: 
  Country: None (occurrence: None)
  Receive Date: 20060125
  Receipt Date: 20051115
  Transmission Date: 20060701
  Serious: No
  Sender: FDA-Public Use
  Company Number: US-BRISTOL-MYERS SQUIBB COMPANY-13183942

PATIENT
  Sex: Female

DRUGS (1)
  1. CARDIOLITE [Suspect]
     Indication: EXERCISE TEST
     Dosage: REST DOSE: 7-14 MCI; STRESS DOSE: 25-45 MCI

REACTIONS (2)
  - SWELLING FACE [None]
  - URTICARIA [None]
